FAERS Safety Report 15907991 (Version 1)
Quarter: 2019Q1

REPORT INFORMATION
  Report Type: Report from Study
  Country: PK (occurrence: PK)
  Receive Date: 20190204
  Receipt Date: 20190204
  Transmission Date: 20190417
  Serious: Yes (Death, Hospitalization)
  Sender: FDA-Public Use
  Company Number: PK-SAKK-2019SA024173AA

PATIENT
  Sex: Female

DRUGS (1)
  1. INSULIN GLARGINE [Suspect]
     Active Substance: INSULIN GLARGINE
     Indication: DIABETES MELLITUS
     Dosage: UNK, QD
     Route: 058
     Dates: start: 20090128, end: 20190114

REACTIONS (6)
  - Hypertension [Unknown]
  - Hypoglycaemia [Unknown]
  - Heart rate decreased [Fatal]
  - Blood potassium increased [Unknown]
  - Renal failure [Unknown]
  - Blood glucose increased [Unknown]
